FAERS Safety Report 4407263-7 (Version None)
Quarter: 2004Q3

REPORT INFORMATION
  Report Type: 
  Country: None (occurrence: None)
  Receive Date: 20040721
  Receipt Date: 20040701
  Transmission Date: 20050211
  Serious: Yes (Other)
  Sender: FDA-Public Use
  Company Number: USA040771687

PATIENT
  Age: 54 Year
  Sex: Female

DRUGS (1)
  1. EVISTA [Suspect]
     Dates: start: 19990101

REACTIONS (2)
  - GRAND MAL CONVULSION [None]
  - PETIT MAL EPILEPSY [None]
